FAERS Safety Report 5708949-4 (Version None)
Quarter: 2008Q2

REPORT INFORMATION
  Report Type: 
  Country: None (occurrence: None)
  Receive Date: 20080414
  Receipt Date: 20080414
  Transmission Date: 20081010
  Serious: Yes (Other)
  Sender: FDA-Public Use
  Company Number: None

PATIENT
  Sex: Female
  Weight: 99.7913 kg

DRUGS (2)
  1. SINGULAIR [Suspect]
     Indication: ASTHMA
     Dosage: 10MG 1 Q DAY PO
     Route: 048
     Dates: start: 20050101, end: 20080331
  2. SINGULAIR [Suspect]
     Indication: MULTIPLE ALLERGIES
     Dosage: 10MG 1 Q DAY PO
     Route: 048
     Dates: start: 20050101, end: 20080331

REACTIONS (2)
  - COMPLETED SUICIDE [None]
  - DEPRESSION [None]
